FAERS Safety Report 11243863 (Version 1)
Quarter: 2015Q3

REPORT INFORMATION
  Report Type: Spontaneous
  Country: US (occurrence: US)
  Receive Date: 20150707
  Receipt Date: 20150707
  Transmission Date: 20151125
  Serious: No
  Sender: FDA-Public Use
  Company Number: US-009507513-1506USA012142

PATIENT
  Sex: Male

DRUGS (1)
  1. HYZAAR [Suspect]
     Active Substance: HYDROCHLOROTHIAZIDE\LOSARTAN POTASSIUM
     Route: 048

REACTIONS (4)
  - Gluten sensitivity [Not Recovered/Not Resolved]
  - Presyncope [Not Recovered/Not Resolved]
  - Arthropathy [Not Recovered/Not Resolved]
  - Dizziness [Not Recovered/Not Resolved]
